FAERS Safety Report 15466946 (Version 1)
Quarter: 2018Q4

REPORT INFORMATION
  Report Type: Spontaneous
  Country: GB (occurrence: GB)
  Receive Date: 20181005
  Receipt Date: 20181005
  Transmission Date: 20190204
  Serious: Yes (Hospitalization)
  Sender: FDA-Public Use
  Company Number: GB-ROCHE-2194220

PATIENT
  Age: 61 Year
  Sex: Female

DRUGS (3)
  1. PARSTELIN [Suspect]
     Active Substance: ACETAMINOPHEN
     Indication: DEPRESSION
     Route: 048
  2. DIAZEPAM. [Suspect]
     Active Substance: DIAZEPAM
     Indication: PRODUCT USED FOR UNKNOWN INDICATION
     Route: 065
  3. TYLEX (UNITED KINGDOM) [Suspect]
     Active Substance: ACETAMINOPHEN\CODEINE PHOSPHATE
     Indication: PRODUCT USED FOR UNKNOWN INDICATION
     Route: 048

REACTIONS (7)
  - Depressed level of consciousness [Unknown]
  - Intentional overdose [Unknown]
  - Trismus [Unknown]
  - Hypothermia [Unknown]
  - Hypertension [Unknown]
  - Pyrexia [Unknown]
  - Blood creatine phosphokinase increased [Unknown]
